FAERS Safety Report 8076424-0 (Version None)
Quarter: 2012Q1

REPORT INFORMATION
  Report Type: 
  Country: None (occurrence: None)
  Receive Date: 20120127
  Receipt Date: 20120119
  Transmission Date: 20120608
  Serious: Yes (Hospitalization)
  Sender: FDA-Public Use
  Company Number: US-BAYER-2011-032768

PATIENT
  Age: 21 Year
  Sex: Female
  Weight: 63.492 kg

DRUGS (1)
  1. YAZ [Suspect]
     Indication: ACNE
     Dosage: UNK
     Dates: start: 20080201, end: 20100101

REACTIONS (5)
  - DEPRESSION [None]
  - PAIN [None]
  - ATTENTION DEFICIT/HYPERACTIVITY DISORDER [None]
  - CHOLECYSTITIS CHRONIC [None]
  - GALLBLADDER DISORDER [None]
